FAERS Safety Report 22634316 (Version 1)
Quarter: 2023Q2

REPORT INFORMATION
  Report Type: Spontaneous
  Country: US (occurrence: None)
  Receive Date: 20230623
  Receipt Date: 20230623
  Transmission Date: 20230722
  Serious: Yes (Hospitalization)
  Sender: FDA-Public Use
  Company Number: US-ROCHE-3370871

PATIENT
  Age: 61 Year
  Sex: Female
  Weight: 46.3 kg

DRUGS (6)
  1. PEGASYS [Suspect]
     Active Substance: PEGINTERFERON ALFA-2A
     Indication: Polycythaemia vera
     Dosage: 180 MCG, 0.5 ML PRE FILLED SYRINGE, 180 MCG/0.5 ML, SOLUTION FOR INJECTION, EVERY 2-3 WEEKS
     Route: 058
     Dates: start: 2008, end: 2023
  2. PEGASYS [Suspect]
     Active Substance: PEGINTERFERON ALFA-2A
  3. PEGASYS [Suspect]
     Active Substance: PEGINTERFERON ALFA-2A
  4. PEGASYS [Suspect]
     Active Substance: PEGINTERFERON ALFA-2A
     Route: 058
     Dates: start: 2023
  5. PEGASYS [Suspect]
     Active Substance: PEGINTERFERON ALFA-2A
  6. PEGASYS [Suspect]
     Active Substance: PEGINTERFERON ALFA-2A

REACTIONS (2)
  - Acute myocardial infarction [Unknown]
  - Off label use [Unknown]

NARRATIVE: CASE EVENT DATE: 20080101
